FAERS Safety Report 17247599 (Version 2)
Quarter: 2020Q1

REPORT INFORMATION
  Report Type: Spontaneous
  Country: FR (occurrence: FR)
  Receive Date: 20200108
  Receipt Date: 20200114
  Transmission Date: 20200409
  Serious: Yes (Other)
  Sender: FDA-Public Use
  Company Number: FR-PFIZER INC-2019525970

PATIENT
  Age: 78 Year
  Sex: Female

DRUGS (4)
  1. COVERSYL [PERINDOPRIL ARGININE] [Suspect]
     Active Substance: PERINDOPRIL ARGININE
     Indication: TENSION
     Dosage: 2.5 MG, 1X/DAY (MORNING)
     Dates: start: 201909
  2. TAHOR [Suspect]
     Active Substance: ATORVASTATIN CALCIUM
     Indication: HYPERCHOLESTEROLAEMIA
     Dosage: 10 MG, 1X/DAY (MIDDAY)
     Dates: start: 20190928, end: 20191018
  3. UBIQUINOL CO Q10 [Suspect]
     Active Substance: UBIQUINOL
  4. AMLOR [Suspect]
     Active Substance: AMLODIPINE BESYLATE
     Indication: HYPERTENSION
     Dosage: 5 MG, ALTERNATE DAY
     Dates: start: 201906

REACTIONS (18)
  - Tachycardia [Recovered/Resolved]
  - Angina pectoris [Recovered/Resolved]
  - Bronchitis chronic [Not Recovered/Not Resolved]
  - Weight decreased [Unknown]
  - Wrong technique in product usage process [Unknown]
  - Nausea [Recovered/Resolved]
  - Cardiovascular disorder [Recovered/Resolved]
  - Eructation [Recovered/Resolved]
  - Sputum retention [Unknown]
  - Off label use [Unknown]
  - Pain [Recovered/Resolved]
  - Muscle disorder [Not Recovered/Not Resolved]
  - Rhinitis [Unknown]
  - Malaise [Recovered/Resolved]
  - Sleep disorder [Recovered/Resolved]
  - Abdominal discomfort [Recovered/Resolved]
  - Decreased appetite [Recovered/Resolved]
  - Oral discomfort [Recovered/Resolved]

NARRATIVE: CASE EVENT DATE: 201906
